FAERS Safety Report 5342071-4 (Version None)
Quarter: 2007Q2

REPORT INFORMATION
  Report Type: 
  Country: None (occurrence: None)
  Receive Date: 20070411
  Receipt Date: 20060501
  Transmission Date: 20071010
  Serious: No
  Sender: FDA-Public Use
  Company Number: 06H-163-0307874-00

PATIENT
  Age: 51 Year
  Sex: Male
  Weight: 84.8226 kg

DRUGS (2)
  1. A-HYDROCORT INJECTION(HYDROCORTISONE SODIUM SUCCINATE) (HYDROCORTISONE [Suspect]
     Indication: PAIN
     Dates: start: 20060217
  2. METFORMIN HCL [Concomitant]

REACTIONS (1)
  - HYPERGLYCAEMIA [None]
